FAERS Safety Report 13085551 (Version 2)
Quarter: 2018Q2

REPORT INFORMATION
  Report Type: Spontaneous
  Country: US (occurrence: US)
  Receive Date: 20170104
  Receipt Date: 20180425
  Transmission Date: 20180711
  Serious: No
  Sender: FDA-Public Use
  Company Number: US-PFIZER INC-2016400571

PATIENT
  Age: 39 Year
  Sex: Female

DRUGS (3)
  1. LYRICA [Suspect]
     Active Substance: PREGABALIN
     Indication: SEIZURE
     Dosage: 100 MG, 3X/DAY
  2. NEURONTIN [Concomitant]
     Active Substance: GABAPENTIN
     Dosage: 300 MG, UNK
  3. CENTRUM [Concomitant]
     Active Substance: VITAMINS
     Dosage: UNK
     Route: 048

REACTIONS (1)
  - Asthenia [Unknown]
